FAERS Safety Report 4531252-5 (Version None)
Quarter: 2004Q4

REPORT INFORMATION
  Report Type: 
  Country: None (occurrence: None)
  Receive Date: 20041216
  Receipt Date: 20041208
  Transmission Date: 20050328
  Serious: Yes (Life-Threatening, Hospitalization)
  Sender: FDA-Public Use
  Company Number: 2004SE05132

PATIENT
  Age: 78 Year
  Sex: Male
  Weight: 67 kg

DRUGS (7)
  1. BLOPRESS [Suspect]
     Indication: HYPERTENSION
     Dosage: 8 MG QD PO
     Route: 048
     Dates: start: 20040423, end: 20040825
  2. PLETAL [Suspect]
     Indication: CAROTID ARTERY OCCLUSION
     Dosage: 200 MG QD PO
     Route: 048
     Dates: start: 20040716, end: 20040825
  3. NIFEDIPINE [Concomitant]
  4. FAMOTIDINE [Concomitant]
  5. BASEN [Concomitant]
  6. GLYBURIDE [Concomitant]
  7. JUVELA NICOTINATE [Concomitant]

REACTIONS (3)
  - ARTERIOSCLEROSIS [None]
  - CAROTID ARTERY OCCLUSION [None]
  - INTERSTITIAL LUNG DISEASE [None]
